FAERS Safety Report 18264123 (Version 1)
Quarter: 2020Q3

REPORT INFORMATION
  Report Type: Spontaneous
  Country: US (occurrence: US)
  Receive Date: 20200914
  Receipt Date: 20200914
  Transmission Date: 20201103
  Serious: No
  Sender: FDA-Public Use
  Company Number: US-PERRIGO-20US007024

PATIENT
  Age: 82 Year
  Sex: Female
  Weight: 97.51 kg

DRUGS (1)
  1. TRIAMCINOLONE ACETONIDE. [Suspect]
     Active Substance: TRIAMCINOLONE ACETONIDE
     Indication: SINUS CONGESTION
     Dosage: 55 MCG, SINGLE, EACH NOSTRIL
     Route: 045
     Dates: start: 20200512, end: 20200512

REACTIONS (1)
  - Underdose [Recovered/Resolved]

NARRATIVE: CASE EVENT DATE: 20200512
